FAERS Safety Report 10177153 (Version 4)
Quarter: 2014Q2

REPORT INFORMATION
  Report Type: Report from Study
  Country: KR (occurrence: KR)
  Receive Date: 20140516
  Receipt Date: 20140623
  Transmission Date: 20141212
  Serious: Yes (Hospitalization)
  Sender: FDA-Public Use
  Company Number: KR-EXELIXIS-XL18414004236

PATIENT
  Age: 37 Year
  Sex: Female
  Weight: 52.2 kg

DRUGS (8)
  1. XL184 [Suspect]
     Indication: HEPATOCELLULAR CARCINOMA
     Dosage: 60 MG, QD
     Route: 048
     Dates: start: 20140401, end: 20140423
  2. XL184 [Suspect]
     Dosage: 60 MG, QD
     Route: 048
     Dates: start: 20140513
  3. VITAMIN B COMPLEX [Concomitant]
  4. ENTECAVIR [Concomitant]
  5. SILYMARIN [Concomitant]
  6. URSODEOXYCHOLIC ACID [Concomitant]
  7. HYDROCORTISONE [Concomitant]
  8. LACTULOSE [Concomitant]

REACTIONS (1)
  - Mallory-Weiss syndrome [Recovered/Resolved]
